FAERS Safety Report 5527551-0 (Version None)
Quarter: 2007Q4

REPORT INFORMATION
  Report Type: 
  Country: None (occurrence: None)
  Receive Date: 20071128
  Receipt Date: 20071114
  Transmission Date: 20080405
  Serious: Yes (Hospitalization, Other)
  Sender: FDA-Public Use
  Company Number: CA-ELI_LILLY_AND_COMPANY-CA200711004434

PATIENT
  Sex: Female

DRUGS (19)
  1. FORTEO [Suspect]
     Indication: OSTEOPOROSIS
     Dosage: 20 UG, DAILY (1/D)
     Route: 058
     Dates: start: 20070409, end: 20071024
  2. FORTEO [Suspect]
     Dosage: 20 UG, DAILY (1/D)
     Route: 058
     Dates: start: 20071031
  3. PROPAFENONE HCL [Concomitant]
     Dosage: 150 MG, 2/D
  4. VITAMIN D [Concomitant]
     Dosage: 1000 U, DAILY (1/D)
  5. ATORVASTATIN CALCIUM [Concomitant]
     Dosage: 10 MG, DAILY (1/D)
  6. FUROSEMIDE [Concomitant]
     Dosage: 40 MG, DAILY (1/D)
  7. DIGOXIN [Concomitant]
     Dosage: 0.625 MG, DAILY (1/D)
  8. DURAGESIC-100 [Concomitant]
     Dosage: 50 UG, UNK
     Route: 062
  9. CLOPIDOGREL BISULFATE [Concomitant]
     Dosage: 75 MG, DAILY (1/D)
  10. HYDROMORPHONE HCL [Concomitant]
     Dosage: 3 MG, 2/D
     Route: 048
  11. HYDROMORPHONE HCL [Concomitant]
     Dosage: 6 MG, DAILY (1/D)
     Route: 048
  12. RAMIPRIL [Concomitant]
     Dosage: 2.5 MG, DAILY (1/D)
  13. DOCUSATE SODIUM [Concomitant]
     Dosage: 100 MG, 2/D
  14. RABEPRAZOLE SODIUM [Concomitant]
     Dosage: 20 MG, 2/D
     Route: 048
  15. POTASSIUM CHLORIDE [Concomitant]
     Dosage: 8 MG, DAILY (1/D)
     Route: 048
  16. METOPROLOL [Concomitant]
     Dosage: 12.5 MG, 2/D
     Route: 048
  17. CALCIUM CARBONATE [Concomitant]
     Dosage: 500 MG, 3/D
     Route: 048
  18. METAMUCIL [Concomitant]
     Dosage: UNK, 2/D
     Route: 048
  19. DOMPERIDONE MALEATE [Concomitant]
     Dosage: 10 MG, 3/D

REACTIONS (5)
  - ABDOMINAL PAIN [None]
  - BACK PAIN [None]
  - CARDIAC FAILURE CONGESTIVE [None]
  - FALL [None]
  - RESPIRATORY TRACT INFECTION [None]
